FAERS Safety Report 21037665 (Version 3)
Quarter: 2022Q4

REPORT INFORMATION
  Report Type: Other
  Country: US (occurrence: None)
  Receive Date: 20220704
  Receipt Date: 20221124
  Transmission Date: 20230112
  Serious: Yes (Hospitalization, Other)
  Sender: FDA-Public Use
  Company Number: US-ROCHE-3099586

PATIENT
  Age: 73 Year
  Sex: Female
  Weight: 72.640 kg

DRUGS (16)
  1. OCREVUS [Suspect]
     Active Substance: OCRELIZUMAB
     Indication: Secondary progressive multiple sclerosis
     Dosage: HALF DOSES
     Route: 042
     Dates: start: 20200205, end: 20200311
  2. OCREVUS [Suspect]
     Active Substance: OCRELIZUMAB
     Indication: Relapsing-remitting multiple sclerosis
     Route: 042
     Dates: start: 20220317
  3. OCREVUS [Suspect]
     Active Substance: OCRELIZUMAB
     Dosage: DATE OF TREATMENT:07/MAY/2022,12/NOV/2021,12/MAY/2021,12/NOV/2020
     Route: 042
  4. OCREVUS [Suspect]
     Active Substance: OCRELIZUMAB
     Dosage: HALF DOSES
     Route: 042
     Dates: start: 20210413, end: 20210429
  5. CITRACAL PLUS D [Concomitant]
  6. DILTIAZEM [Concomitant]
     Active Substance: DILTIAZEM
     Route: 048
  7. DULOXETINE [Concomitant]
     Active Substance: DULOXETINE
     Route: 048
  8. FLUTICASONE [Concomitant]
     Active Substance: FLUTICASONE
     Dosage: 50 MCG 1 SPRAY EACH NOSTRIL DAILY
     Route: 045
  9. LOSARTAN [Concomitant]
     Active Substance: LOSARTAN
     Indication: Hypertension
     Route: 048
  10. MEXILETINE [Concomitant]
     Active Substance: MEXILETINE
     Indication: Heart rate irregular
     Route: 048
  11. FLUCONAZOLE [Concomitant]
     Active Substance: FLUCONAZOLE
     Dosage: STARTED ABOUT 1 YEAR AGO
     Route: 048
  12. ALLEGRA-D 24 HOUR [Concomitant]
     Active Substance: FEXOFENADINE HYDROCHLORIDE\PSEUDOEPHEDRINE HYDROCHLORIDE
     Dosage: STARTED ABOUT 8 MONTHS AGO
     Route: 048
     Dates: start: 2022
  13. TIZANIDINE [Concomitant]
     Active Substance: TIZANIDINE
  14. LYRICA [Concomitant]
     Active Substance: PREGABALIN
  15. CLONAZEPAM [Concomitant]
     Active Substance: CLONAZEPAM
  16. CULTURELLE PROBIOTICS DIGESTIVE HEALTH [Concomitant]

REACTIONS (15)
  - Hypoaesthesia [Recovered/Resolved]
  - Paraesthesia [Recovered/Resolved]
  - Memory impairment [Not Recovered/Not Resolved]
  - Hip fracture [Recovered/Resolved]
  - Weight increased [Not Recovered/Not Resolved]
  - Disturbance in attention [Not Recovered/Not Resolved]
  - Neuropathy peripheral [Recovered/Resolved]
  - Hot flush [Not Recovered/Not Resolved]
  - Sinusitis [Recovered/Resolved]
  - Off label use [Unknown]
  - Fall [Unknown]
  - Osteopenia [Not Recovered/Not Resolved]
  - Eye infection [Recovering/Resolving]
  - Multiple sclerosis [Not Recovered/Not Resolved]
  - Drug ineffective [Unknown]

NARRATIVE: CASE EVENT DATE: 20210413
